FAERS Safety Report 11445001 (Version 1)
Quarter: 2015Q3

REPORT INFORMATION
  Report Type: Spontaneous
  Country: CA (occurrence: CA)
  Receive Date: 20150902
  Receipt Date: 20150902
  Transmission Date: 20151125
  Serious: Yes (Life-Threatening, Other)
  Sender: FDA-Public Use
  Company Number: CA-TEVA-590537ACC

PATIENT
  Age: 23 Year
  Sex: Female
  Weight: 77.18 kg

DRUGS (2)
  1. VENLAFAXINE XR [Suspect]
     Active Substance: VENLAFAXINE HYDROCHLORIDE
     Indication: PAIN
     Dosage: 1 DOSAGE FORMS DAILY;
     Route: 048
  2. APO-TRAMADOL/ACET [Suspect]
     Active Substance: ACETAMINOPHEN\TRAMADOL HYDROCHLORIDE
     Indication: DEPRESSION
     Dosage: 16 DOSAGE FORMS DAILY;
     Route: 048

REACTIONS (7)
  - Serotonin syndrome [Recovered/Resolved]
  - Hyperreflexia [Recovered/Resolved]
  - Malaise [Recovered/Resolved]
  - Hyperthermia [Recovered/Resolved]
  - Pyrexia [Recovered/Resolved]
  - Muscle rigidity [Recovered/Resolved]
  - Tachycardia [Recovered/Resolved]
